FAERS Safety Report 4460949-0 (Version None)
Quarter: 2004Q3

REPORT INFORMATION
  Report Type: 
  Country: None (occurrence: None)
  Receive Date: 20040928
  Receipt Date: 20040615
  Transmission Date: 20050211
  Serious: No
  Sender: FDA-Public Use
  Company Number: US-GLAXOSMITHKLINE-A0514672A

PATIENT
  Age: 75 Year
  Sex: Male

DRUGS (4)
  1. ADVAIR DISKUS 100/50 [Suspect]
     Indication: ILL-DEFINED DISORDER
     Dosage: 250MCG TWICE PER DAY
     Route: 055
     Dates: start: 20030101
  2. SINGULAIR [Concomitant]
  3. ALBUTEROL [Concomitant]
  4. COMBIVENT [Concomitant]

REACTIONS (1)
  - FATIGUE [None]
